FAERS Safety Report 10048489 (Version 1)
Quarter: 2014Q1

REPORT INFORMATION
  Report Type: Spontaneous
  Country: US (occurrence: None)
  Receive Date: 20140306
  Receipt Date: 20140306
  Transmission Date: 20141002
  Serious: Yes (Other)
  Sender: FDA-Public Use
  Company Number: 163-21880-13013357

PATIENT
  Age: 76 Year
  Sex: Female

DRUGS (23)
  1. REVLIMID [Suspect]
     Indication: PLASMA CELL MYELOMA
     Dosage: 25 MG, 14 IN 14 D, PO
     Route: 048
     Dates: start: 20121220
  2. PREDNISONE (PREDNISONE) [Concomitant]
  3. FAMCICLOVIR (FAMCICLOVIR) [Concomitant]
  4. DEXAMETHASONE (DEXAMETHASONE) [Concomitant]
  5. POTASSIUM (POTASSIUM) [Concomitant]
  6. FENTANYL (FENTANYL) [Concomitant]
  7. SIMVASTATIN (SIMVASTATIN) [Concomitant]
  8. PROCHLORPERAZINE (PROCHLORPERAZINE) [Concomitant]
  9. ORPHENADRINE (ORPHENADRINE) [Concomitant]
  10. SERTRALINE (SERTRALINE) [Concomitant]
  11. ACTONEL (RISEDRONATE SODIUM) [Concomitant]
  12. NITROFURANTOIN (NITROFURANTOIN) [Concomitant]
  13. DIPHENOXYLATE-ATROPHINE (LOMOTIL) [Concomitant]
  14. LEVOTHYROXINE (LEVOTHYROXINE) [Concomitant]
  15. OMEPRAZOLE (OMEPRAZOLE) [Concomitant]
  16. BUDESONIDE (BUDESONIDE) [Concomitant]
  17. LATANOPROST (LATANOPROST) [Concomitant]
  18. HYDROCODONE-ACETAMINOPHEN (REMEDEINE) [Concomitant]
  19. MECLIZINE (MECLOZINE) [Concomitant]
  20. OXYCONTIN (OXYCODONE HYDROCHLORIDE) [Concomitant]
  21. MOVIPREP (MOVIPREP) [Concomitant]
  22. APRISO (MESALAZINE) [Concomitant]
  23. PROBIOTIC (BIFIDOBACTERIUM LACTIS) (CAPSULES) [Concomitant]

REACTIONS (3)
  - Visual acuity reduced [None]
  - Visual impairment [None]
  - Rash [None]
